FAERS Safety Report 5204849-7 (Version None)
Quarter: 2007Q1

REPORT INFORMATION
  Report Type: 
  Country: None (occurrence: None)
  Receive Date: 20070110
  Receipt Date: 20060809
  Transmission Date: 20070707
  Serious: No
  Sender: FDA-Public Use
  Company Number: US-BRISTOL-MYERS SQUIBB COMPANY-13469218

PATIENT
  Age: 46 Year
  Sex: Male
  Weight: 91 kg

DRUGS (3)
  1. ABILIFY [Suspect]
     Dosage: REDUCED TO 5 MG DAILY
     Route: 048
     Dates: start: 20060601
  2. CLONIDINE [Concomitant]
  3. FISH OIL [Concomitant]

REACTIONS (2)
  - DYSKINESIA [None]
  - INSOMNIA [None]
